FAERS Safety Report 5259630-X (Version None)
Quarter: 2007Q1

REPORT INFORMATION
  Report Type: 
  Country: None (occurrence: None)
  Receive Date: 20070309
  Receipt Date: 20070302
  Transmission Date: 20070707
  Serious: Yes (Hospitalization)
  Sender: FDA-Public Use
  Company Number: HQWYE338120OCT06

PATIENT
  Sex: Female

DRUGS (8)
  1. LEVONORGESTREL AND ETHINYL ESTRADIOL [Suspect]
     Indication: DYSMENORRHOEA
     Route: 048
     Dates: start: 20060903, end: 20061015
  2. ETIZOLAM [Concomitant]
     Indication: PANIC DISORDER
     Dosage: UNKNOWN
     Route: 048
     Dates: start: 20040101
  3. NITRAZEPAM [Concomitant]
     Indication: PANIC DISORDER
     Dosage: UNKNOWN
     Route: 048
     Dates: start: 20040101
  4. FLUVOXAMINE MALEATE [Concomitant]
     Indication: PANIC DISORDER
     Dosage: UNKNOWN
     Route: 048
     Dates: start: 20040101
  5. FLUNITRAZEPAM [Concomitant]
     Indication: PANIC DISORDER
     Dosage: UNKNOWN
     Route: 048
     Dates: start: 20040101
  6. TRAZODONE HYDROCHLORIDE [Concomitant]
     Indication: PANIC DISORDER
     Dosage: UNKNOWN
     Route: 048
     Dates: start: 20040101
  7. ALPRAZOLAM [Concomitant]
     Indication: PANIC DISORDER
     Dosage: UNKNOWN
     Route: 048
     Dates: start: 20040101
  8. AMEZINIUM METILSULFATE [Concomitant]
     Indication: PANIC DISORDER
     Dosage: UNKNOWN
     Route: 048
     Dates: start: 20040101

REACTIONS (1)
  - DEEP VEIN THROMBOSIS [None]
